FAERS Safety Report 5802800-X (Version None)
Quarter: 2008Q3

REPORT INFORMATION
  Report Type: 
  Country: None (occurrence: None)
  Receive Date: 20080708
  Receipt Date: 20080630
  Transmission Date: 20090109
  Serious: Yes (Hospitalization)
  Sender: FDA-Public Use
  Company Number: US-ABBOTT-08P-163-0460204-00

PATIENT
  Sex: Female
  Weight: 63.56 kg

DRUGS (15)
  1. HUMIRA [Suspect]
     Indication: RHEUMATOID ARTHRITIS
     Route: 058
  2. LEVTHROID MODIFIED [Concomitant]
     Indication: HYPOTHYROIDISM
     Route: 048
  3. ALLEGRA [Concomitant]
     Indication: SEASONAL ALLERGY
     Route: 048
  4. FLUTICASONE PROPIONATE [Concomitant]
     Indication: SEASONAL ALLERGY
     Dosage: 2 X DAILY-ONE SQUIRT EACH NOSTRIL DAILY
     Route: 055
  5. ESCITALOPRAM OXALATE [Concomitant]
     Indication: DEPRESSION
     Route: 048
  6. ZOLPIDEM TARTRATE [Concomitant]
     Indication: SLEEP DISORDER THERAPY
     Route: 048
  7. METHYLPHENIDATE HCL [Concomitant]
     Indication: ATTENTION DEFICIT/HYPERACTIVITY DISORDER
     Route: 048
  8. CYCLOSPORINE [Concomitant]
     Indication: DRY EYE
     Route: 048
  9. ESOMEPRAZOLE MAGNESIUM [Concomitant]
     Indication: GASTROOESOPHAGEAL REFLUX DISEASE
     Route: 048
  10. VICODIN [Concomitant]
     Indication: PAIN
     Dosage: 7.5/500 MG AS NEEDED
  11. HYDROXYCHLOROQUINE SULFATE [Concomitant]
     Indication: RHEUMATOID ARTHRITIS
     Route: 048
  12. LEFLUNOMIDE [Concomitant]
     Indication: RHEUMATOID ARTHRITIS
     Route: 048
  13. FOLIC ACID [Concomitant]
     Indication: VITAMIN SUPPLEMENTATION
     Route: 048
  14. FOLIC ACID [Concomitant]
     Indication: RHEUMATOID ARTHRITIS
  15. SULFALATE (SULFASALAZATE) [Concomitant]
     Indication: RHEUMATOID ARTHRITIS
     Route: 048

REACTIONS (3)
  - ACCIDENTAL EXPOSURE [None]
  - SPINAL FUSION SURGERY [None]
  - SPINAL ROD INSERTION [None]
